FAERS Safety Report 18292761 (Version 3)
Quarter: 2020Q4

REPORT INFORMATION
  Report Type: Report from Study
  Country: KR (occurrence: KR)
  Receive Date: 20200922
  Receipt Date: 20201029
  Transmission Date: 20210113
  Serious: Yes (Hospitalization)
  Sender: FDA-Public Use
  Company Number: KR-CELLTRION INC.-2020KR027794

PATIENT

DRUGS (15)
  1. TRUXIMA [Suspect]
     Active Substance: RITUXIMAB-ABBS
     Dosage: 375 MG/M2 (BSA 1.52, TOTAL 570MG) IV QD (ONCE IN A DAY) DRUG CONCENTRATION: 500MG
     Route: 042
     Dates: start: 20200915
  2. TRUXIMA [Suspect]
     Active Substance: RITUXIMAB-ABBS
     Dosage: 375 MG/M2 (BSA 1.52, TOTAL 570MG) IV QD (ONCE IN A DAY) DRUG CONCENTRATION: 100MG
     Route: 042
     Dates: start: 20200915
  3. NEBISTOL [Concomitant]
     Indication: HYPERTENSION
     Dosage: 2.5 MG
     Route: 048
  4. ASPIRIN. [Concomitant]
     Active Substance: ASPIRIN
     Indication: ANGINA PECTORIS
     Dosage: 100 MG
     Route: 048
  5. LIPITOR [Concomitant]
     Active Substance: ATORVASTATIN CALCIUM
     Indication: HYPERLIPIDAEMIA
     Dosage: 40 MG
     Route: 048
  6. TRUXIMA [Suspect]
     Active Substance: RITUXIMAB-ABBS
     Dosage: 375 MG/M2 (BSA 1.52, TOTAL 570MG) IV QD (ONCE IN A DAY) DRUG CONCENTRATION: 100MG
     Route: 042
     Dates: start: 20200714
  7. TRUXIMA [Suspect]
     Active Substance: RITUXIMAB-ABBS
     Dosage: 375 MG/M2 (BSA 1.52, TOTAL 570MG) IV QD (ONCE IN A DAY) DRUG CONCENTRATION: 100MG
     Route: 042
     Dates: start: 20200817
  8. TRUXIMA [Suspect]
     Active Substance: RITUXIMAB-ABBS
     Dosage: 375 MG/M2 (BSA 1.52, TOTAL 570MG) IV QD (ONCE IN A DAY) DRUG CONCENTRATION: 100MG
     Route: 042
     Dates: start: 20200630, end: 20200915
  9. TRUXIMA [Suspect]
     Active Substance: RITUXIMAB-ABBS
     Indication: DIFFUSE LARGE B-CELL LYMPHOMA
     Dosage: 375 MG/M2 (BSA 1.52, TOTAL 570MG) IV QD (ONCE IN A DAY) DRUG CONCENTRATION: 100MG
     Route: 042
     Dates: start: 20200630, end: 20200817
  10. TRUXIMA [Suspect]
     Active Substance: RITUXIMAB-ABBS
     Dosage: 375 MG/M2 (BSA 1.52, TOTAL 570MG) IV QD (ONCE IN A DAY) DRUG CONCENTRATION: 500MG
     Route: 042
     Dates: start: 20200714
  11. TRUXIMA [Suspect]
     Active Substance: RITUXIMAB-ABBS
     Dosage: 375 MG/M2 (BSA 1.52, TOTAL 570MG) IV QD (ONCE IN A DAY) DRUG CONCENTRATION: 500MG
     Route: 042
     Dates: start: 20200630, end: 20200915
  12. ACALABRUTINIB. [Suspect]
     Active Substance: ACALABRUTINIB
     Indication: DIFFUSE LARGE B-CELL LYMPHOMA
  13. TRUXIMA [Suspect]
     Active Substance: RITUXIMAB-ABBS
     Dosage: 375 MG/M2 (BSA 1.52, TOTAL 570MG) IV QD (ONCE IN A DAY) DRUG CONCENTRATION: 500MG
     Route: 042
     Dates: start: 20200817
  14. LENALID [Suspect]
     Active Substance: LENALIDOMIDE
     Indication: DIFFUSE LARGE B-CELL LYMPHOMA
  15. TRUXIMA [Suspect]
     Active Substance: RITUXIMAB-ABBS
     Dosage: 375 MG/M2 (BSA 1.52, TOTAL 570MG) IV QD (ONCE IN A DAY) DRUG CONCENTRATION: 500MG
     Route: 042
     Dates: start: 20200630, end: 20200817

REACTIONS (2)
  - Underdose [Unknown]
  - Febrile neutropenia [Recovered/Resolved]

NARRATIVE: CASE EVENT DATE: 20200908
